FAERS Safety Report 5921151-6 (Version None)
Quarter: 2008Q4

REPORT INFORMATION
  Report Type: 
  Country: None (occurrence: None)
  Receive Date: 20081016
  Receipt Date: 20080209
  Transmission Date: 20090506
  Serious: No
  Sender: FDA-Public Use
  Company Number: US-BRISTOL-MYERS SQUIBB COMPANY-14074058

PATIENT

DRUGS (1)
  1. VEPESID [Suspect]

REACTIONS (1)
  - DRUG INEFFECTIVE [None]
